FAERS Safety Report 4896575-9 (Version None)
Quarter: 2005Q4

REPORT INFORMATION
  Report Type: 
  Country: None (occurrence: None)
  Receive Date: 20051223
  Receipt Date: 20051103
  Transmission Date: 20060501
  Serious: No
  Sender: FDA-Public Use
  Company Number: 05P-163-0316421-00

PATIENT
  Age: 58 Year
  Sex: Female
  Weight: 56.246 kg

DRUGS (6)
  1. HUMIRA [Suspect]
     Indication: RHEUMATOID ARTHRITIS
     Dosage: 40 MG, 2 IN 1 WK, SUBCUTANEOUS
     Route: 058
     Dates: start: 20051006
  2. CELECOXIB [Concomitant]
  3. LEFLUNOMIDE [Concomitant]
  4. HYDROXYCHLOROQUINE PHOSPHATE [Concomitant]
  5. RABEPRAZOLE SODIUM [Concomitant]
  6. OXYCODONE HCL [Concomitant]

REACTIONS (1)
  - INJECTION SITE IRRITATION [None]
